FAERS Safety Report 23998415 (Version 1)
Quarter: 2024Q2

REPORT INFORMATION
  Report Type: Spontaneous
  Country: US (occurrence: None)
  Receive Date: 20240620
  Receipt Date: 20240620
  Transmission Date: 20240716
  Serious: Yes (Hospitalization)
  Sender: FDA-Public Use
  Company Number: None

PATIENT
  Age: 63 Year
  Sex: Female

DRUGS (1)
  1. AMBRISENTAN [Suspect]
     Active Substance: AMBRISENTAN
     Indication: Pulmonary hypertension
     Dosage: FREQUENCY : DAILY;?
     Route: 048
     Dates: start: 20240619

REACTIONS (5)
  - Acute respiratory failure [None]
  - Cardiac failure congestive [None]
  - Chronic obstructive pulmonary disease [None]
  - Pulmonary sarcoidosis [None]
  - Condition aggravated [None]

NARRATIVE: CASE EVENT DATE: 20240614
